FAERS Safety Report 5868742-9 (Version None)
Quarter: 2008Q3

REPORT INFORMATION
  Report Type: 
  Country: None (occurrence: None)
  Receive Date: 20080903
  Receipt Date: 20080822
  Transmission Date: 20090109
  Serious: Yes (Hospitalization)
  Sender: FDA-Public Use
  Company Number: FI-AMGEN-UK303651

PATIENT
  Age: 61 Year
  Sex: Male

DRUGS (2)
  1. NEUPOGEN [Suspect]
     Indication: NEUTROPENIA
     Dates: start: 20080821, end: 20080822
  2. ALLOPURINOL [Concomitant]
     Dates: end: 20080822

REACTIONS (3)
  - DYSPHONIA [None]
  - PHARYNGEAL OEDEMA [None]
  - SKIN REACTION [None]
